FAERS Safety Report 7351041-6 (Version None)
Quarter: 2011Q1

REPORT INFORMATION
  Report Type: 
  Country: None (occurrence: None)
  Receive Date: 20110314
  Receipt Date: 20110307
  Transmission Date: 20110831
  Serious: Yes (Hospitalization)
  Sender: FDA-Public Use
  Company Number: US-ASTRAZENECA-2011SE11615

PATIENT
  Age: 58 Year
  Sex: Female

DRUGS (3)
  1. SYMBICORT [Suspect]
     Indication: CHRONIC OBSTRUCTIVE PULMONARY DISEASE
     Dosage: 160/4.5 MCG WITH UNKNOWN FREQUENCY
     Route: 055
  2. SYMBICORT [Suspect]
     Indication: ASTHMA
     Dosage: 160/4.5 MCG WITH UNKNOWN FREQUENCY
     Route: 055
  3. SPIRIVA [Concomitant]

REACTIONS (4)
  - PNEUMONIA BACTERIAL [None]
  - INFLUENZA [None]
  - DRUG DOSE OMISSION [None]
  - MUSCLE DISORDER [None]
